FAERS Safety Report 7772175-8 (Version None)
Quarter: 2011Q3

REPORT INFORMATION
  Report Type: 
  Country: None (occurrence: None)
  Receive Date: 20110922
  Receipt Date: 20101117
  Transmission Date: 20111222
  Serious: No
  Sender: FDA-Public Use
  Company Number: US-ASTRAZENECA-2010SE54854

PATIENT
  Sex: Female

DRUGS (1)
  1. SEROQUEL XR [Suspect]
     Indication: DEPRESSION
     Route: 048
     Dates: start: 20101001

REACTIONS (6)
  - PAIN IN EXTREMITY [None]
  - HEADACHE [None]
  - FATIGUE [None]
  - DIZZINESS [None]
  - DECREASED APPETITE [None]
  - SOCIAL AVOIDANT BEHAVIOUR [None]
